FAERS Safety Report 6746974-5 (Version None)
Quarter: 2010Q2

REPORT INFORMATION
  Report Type: 
  Country: None (occurrence: None)
  Receive Date: 20100528
  Receipt Date: 20100225
  Transmission Date: 20101027
  Serious: No
  Sender: FDA-Public Use
  Company Number: US-ASTRAZENECA-2010SE08759

PATIENT

DRUGS (6)
  1. PRILOSEC OTC [Suspect]
     Indication: GASTROOESOPHAGEAL REFLUX DISEASE
     Route: 048
     Dates: start: 20080101
  2. PRILOSEC OTC [Suspect]
     Route: 048
     Dates: start: 20080101
  3. PRILOSEC OTC [Suspect]
     Route: 048
     Dates: start: 20090731
  4. PRILOSEC OTC [Suspect]
     Route: 048
     Dates: start: 20090731
  5. PRILOSEC OTC [Suspect]
     Route: 048
     Dates: start: 20090731
  6. PRILOSEC OTC [Suspect]
     Route: 048
     Dates: start: 20090731

REACTIONS (2)
  - DRUG INEFFECTIVE [None]
  - PRODUCT COUNTERFEIT [None]
